FAERS Safety Report 9479037 (Version 1)
Quarter: 2013Q3

REPORT INFORMATION
  Report Type: Spontaneous
  Country: US (occurrence: US)
  Receive Date: 20130827
  Receipt Date: 20130827
  Transmission Date: 20140515
  Serious: No
  Sender: FDA-Public Use
  Company Number: US-BAYER-2013-103492

PATIENT
  Age: 66 Year
  Sex: Male
  Weight: 81.63 kg

DRUGS (16)
  1. ALEVE TABLET [Suspect]
     Dosage: 1 DF, QD
     Route: 048
     Dates: start: 201307
  2. VALIUM [Concomitant]
  3. FLOMAX [MORNIFLUMATE] [Concomitant]
  4. LUVOX [Concomitant]
  5. XARELTO [Concomitant]
  6. ATENOLOL [Concomitant]
  7. FINASTERIDE [Concomitant]
  8. FISH OIL [Concomitant]
  9. VITAMIN D [Concomitant]
  10. VITAMIN E [Concomitant]
  11. VITAMIN C [Concomitant]
  12. B-COMPLEX [VITAMIN B NOS] [Concomitant]
  13. GARLIC [Concomitant]
  14. GLUCOSAMINE [Concomitant]
  15. MAGNESIUM [Concomitant]
  16. CALCIUM [Concomitant]

REACTIONS (1)
  - Incorrect drug administration duration [None]
